FAERS Safety Report 8841921 (Version 2)
Quarter: 2014Q1

REPORT INFORMATION
  Report Type: Spontaneous
  Country: US (occurrence: US)
  Receive Date: 20121016
  Receipt Date: 20140213
  Transmission Date: 20141002
  Serious: Yes (Hospitalization, Other)
  Sender: FDA-Public Use
  Company Number: US-BAYER-2012-106395

PATIENT
  Age: 22 Year
  Sex: Female
  Weight: 64 kg

DRUGS (4)
  1. YASMIN [Suspect]
     Dosage: UNK
     Dates: start: 201009
  2. YAZ [Suspect]
  3. OCELLA [Suspect]
  4. PERCOCET [Concomitant]

REACTIONS (8)
  - Gallbladder injury [None]
  - Cholecystitis acute [None]
  - Emotional distress [None]
  - Pain [None]
  - Injury [None]
  - General physical health deterioration [None]
  - Anxiety [None]
  - Pain [None]
